FAERS Safety Report 12341425 (Version 1)
Quarter: 2016Q2

REPORT INFORMATION
  Report Type: Spontaneous
  Country: BR (occurrence: BR)
  Receive Date: 20160506
  Receipt Date: 20160506
  Transmission Date: 20160815
  Serious: Yes (Other)
  Sender: FDA-Public Use
  Company Number: BR-PFIZER INC-2016239859

PATIENT
  Age: 71 Year
  Sex: Female
  Weight: 53 kg

DRUGS (2)
  1. TIMOLOL MALEATE. [Concomitant]
     Active Substance: TIMOLOL MALEATE
     Indication: GLAUCOMA
     Dosage: 2 DROPS, ONE IN THE MORNING AND ONE AT NIGHT
     Route: 047
     Dates: start: 2011, end: 201411
  2. XALATAN [Suspect]
     Active Substance: LATANOPROST
     Dosage: 1 DROP DAILY, AT NIGHT
     Route: 047
     Dates: start: 201210, end: 201410

REACTIONS (1)
  - Cataract [Unknown]
